FAERS Safety Report 10084138 (Version 1)
Quarter: 2014Q2

REPORT INFORMATION
  Report Type: Spontaneous
  Country: JP (occurrence: None)
  Receive Date: 20140415
  Receipt Date: 20140415
  Transmission Date: 20141212
  Serious: Yes (Death, Other)
  Sender: FDA-Public Use
  Company Number: SYM-2014-17959

PATIENT
  Age: 74 Year
  Sex: 0

DRUGS (4)
  1. FLUOROURACIL [Suspect]
     Indication: RECTAL CANCER
  2. IRINOTECAN [Suspect]
     Indication: RECTAL CANCER
  3. LEUCOVORIN [Suspect]
     Indication: RECTAL CANCER
  4. BEVACIZUMAB [Suspect]
     Indication: RECTAL CANCER

REACTIONS (2)
  - Hepatitis B [None]
  - Hepatic failure [None]
